FAERS Safety Report 10541402 (Version 1)
Quarter: 2014Q4

REPORT INFORMATION
  Report Type: Spontaneous
  Country: US (occurrence: None)
  Receive Date: 20141010
  Receipt Date: 20141010
  Transmission Date: 20150529
  Serious: No
  Sender: FDA-Public Use
  Company Number: 163-POMAL-14072538

PATIENT
  Age: 68 Year
  Sex: Male

DRUGS (1)
  1. POMALYST [Suspect]
     Active Substance: POMALIDOMIDE
     Indication: PLASMA CELL MYELOMA
     Route: 048
     Dates: start: 201405

REACTIONS (6)
  - Somnolence [None]
  - Fatigue [None]
  - Dizziness [None]
  - Discomfort [None]
  - Cough [None]
  - Vision blurred [None]

NARRATIVE: CASE EVENT DATE: 20140614
